FAERS Safety Report 16216609 (Version 2)
Quarter: 2019Q2

REPORT INFORMATION
  Report Type: Report from Study
  Country: US (occurrence: US)
  Receive Date: 20190419
  Receipt Date: 20190423
  Transmission Date: 20190711
  Serious: Yes (Other)
  Sender: FDA-Public Use
  Company Number: US-KYOWAKIRIN-2019BKK006044

PATIENT

DRUGS (2)
  1. BUROSUMAB [Suspect]
     Active Substance: BUROSUMAB
     Dosage: 2 MG/KG, SINGLE
     Route: 058
     Dates: start: 20190321, end: 20190321
  2. BUROSUMAB [Suspect]
     Active Substance: BUROSUMAB
     Indication: HYPOPHOSPHATAEMIC OSTEOMALACIA
     Dosage: 0.3 MG/KG, SINGLE
     Route: 058
     Dates: start: 20160408, end: 20160408

REACTIONS (2)
  - White blood cell count increased [Unknown]
  - Abscess [Unknown]

NARRATIVE: CASE EVENT DATE: 20190403
